FAERS Safety Report 7328660-6 (Version None)
Quarter: 2011Q1

REPORT INFORMATION
  Report Type: 
  Country: None (occurrence: None)
  Receive Date: 20110303
  Receipt Date: 20100708
  Transmission Date: 20110831
  Serious: No
  Sender: FDA-Public Use
  Company Number: US-SANOFI-AVENTIS-2010SA040757

PATIENT
  Age: 80 Year
  Sex: Female

DRUGS (1)
  1. DIABETA [Suspect]
     Route: 048
     Dates: start: 20080101

REACTIONS (2)
  - DIZZINESS [None]
  - VISION BLURRED [None]
